FAERS Safety Report 6664656-5 (Version None)
Quarter: 2010Q1

REPORT INFORMATION
  Report Type: 
  Country: None (occurrence: None)
  Receive Date: 20100330
  Receipt Date: 20100315
  Transmission Date: 20100710
  Serious: Yes (Hospitalization)
  Sender: FDA-Public Use
  Company Number: CS-JNJFOC-20070603348

PATIENT
  Age: 64 Year
  Sex: Female

DRUGS (6)
  1. DECITABINE (DECITABINE) LYOPHILIZED POWDER [Suspect]
     Indication: ACUTE MYELOID LEUKAEMIA
     Dosage: 33.4 MG, INTRAVENOUS
     Route: 042
     Dates: start: 20061108, end: 20061112
  2. TAZOCIN (PIP/TAZO) [Concomitant]
  3. TARGOCID [Concomitant]
  4. CLINDAMYCIN HCL [Concomitant]
  5. DIFLUCAN [Concomitant]
  6. TRAMADOL HCL [Concomitant]

REACTIONS (4)
  - ACUTE RESPIRATORY DISTRESS SYNDROME [None]
  - APLASIA [None]
  - HYPERTENSIVE CRISIS [None]
  - THERAPEUTIC PRODUCT INEFFECTIVE [None]
